FAERS Safety Report 11808117 (Version 2)
Quarter: 2015Q4

REPORT INFORMATION
  Report Type: Spontaneous
  Country: US (occurrence: US)
  Receive Date: 20151207
  Receipt Date: 20151231
  Transmission Date: 20160305
  Serious: No
  Sender: FDA-Public Use
  Company Number: US-PFIZER INC-2015414014

PATIENT
  Age: 44 Year
  Sex: Female

DRUGS (1)
  1. LYRICA [Suspect]
     Active Substance: PREGABALIN
     Indication: FIBROMYALGIA
     Dosage: UNK

REACTIONS (5)
  - Fall [Unknown]
  - Pain in extremity [Unknown]
  - Therapeutic response unexpected [Unknown]
  - Energy increased [Unknown]
  - Joint injury [Not Recovered/Not Resolved]
